FAERS Safety Report 5241889-6 (Version None)
Quarter: 2007Q1

REPORT INFORMATION
  Report Type: 
  Country: None (occurrence: None)
  Receive Date: 20070220
  Receipt Date: 20070207
  Transmission Date: 20070707
  Serious: Yes (Other)
  Sender: FDA-Public Use
  Company Number: GB-ELI_LILLY_AND_COMPANY-GB200702001796

PATIENT
  Sex: Female

DRUGS (2)
  1. EVISTA [Suspect]
     Indication: OSTEOPOROSIS
     Dosage: 60 MG, UNK
     Dates: start: 20020101
  2. ADCAL-D3 [Concomitant]
     Indication: OSTEOPOROSIS

REACTIONS (2)
  - METASTASES TO BONE [None]
  - RENAL CELL CARCINOMA STAGE UNSPECIFIED [None]
